FAERS Safety Report 7875368-4 (Version None)
Quarter: 2011Q4

REPORT INFORMATION
  Report Type: 
  Country: None (occurrence: None)
  Receive Date: 20111031
  Receipt Date: 20110811
  Transmission Date: 20120403
  Serious: Yes (Other)
  Sender: FDA-Public Use
  Company Number: GB-GLAXOSMITHKLINE-B0738764A

PATIENT
  Age: 79 Year
  Sex: Female
  Weight: 40 kg

DRUGS (3)
  1. FLUTICASONE PROPIONATE/SALMETEROL [Suspect]
     Indication: CHRONIC OBSTRUCTIVE PULMONARY DISEASE
     Dates: start: 20110729
  2. ALBUTEROL SULFATE AUTOHALER [Concomitant]
     Dates: start: 20110729
  3. IPRATROPIUM BROMIDE [Concomitant]
     Dates: start: 20110729

REACTIONS (2)
  - DYSPNOEA [None]
  - MALAISE [None]
